FAERS Safety Report 23495857 (Version 1)
Quarter: 2024Q1

REPORT INFORMATION
  Report Type: Spontaneous
  Country: US (occurrence: US)
  Receive Date: 20240207
  Receipt Date: 20240207
  Transmission Date: 20240409
  Serious: No
  Sender: FDA-Public Use
  Company Number: US-DSJP-DSU-2024-105561

PATIENT
  Sex: Male

DRUGS (1)
  1. ENHERTU [Suspect]
     Active Substance: FAM-TRASTUZUMAB DERUXTECAN-NXKI
     Indication: Oesophageal carcinoma
     Dosage: 350 MG, ONCE EVERY 3 WK
     Route: 042
     Dates: end: 20240201

REACTIONS (2)
  - Platelet count decreased [Unknown]
  - Off label use [Not Recovered/Not Resolved]
